FAERS Safety Report 8055120-X (Version None)
Quarter: 2012Q1

REPORT INFORMATION
  Report Type: 
  Country: None (occurrence: None)
  Receive Date: 20120119
  Receipt Date: 20120111
  Transmission Date: 20120608
  Serious: Yes (Hospitalization)
  Sender: FDA-Public Use
  Company Number: DE-BRISTOL-MYERS SQUIBB COMPANY-16347445

PATIENT
  Age: 84 Year
  Sex: Male
  Weight: 67 kg

DRUGS (4)
  1. CERTOPARIN SODIUM [Concomitant]
     Route: 030
     Dates: start: 20110110
  2. IPILIMUMAB [Suspect]
     Indication: MALIGNANT MELANOMA
     Route: 042
     Dates: start: 20110705, end: 20110907
  3. EMBOLEX [Concomitant]
     Route: 030
     Dates: start: 20110110
  4. OXAZEPAM [Concomitant]
     Dates: start: 20110110

REACTIONS (1)
  - ABDOMINAL PAIN [None]
